FAERS Safety Report 24243574 (Version 1)
Quarter: 2024Q3

REPORT INFORMATION
  Report Type: Spontaneous
  Country: US (occurrence: None)
  Receive Date: 20240823
  Receipt Date: 20240823
  Transmission Date: 20241017
  Serious: Yes (Hospitalization, Other)
  Sender: EMMAUS LIFE SCIENCES
  Company Number: US-Emmaus Medical, Inc.-EMM202301-000016

PATIENT
  Age: 59 Year
  Sex: Female
  Weight: 85.27 kg

DRUGS (4)
  1. ENDARI [Suspect]
     Active Substance: GLUTAMINE
     Indication: Sickle cell disease
     Dosage: 15 G
     Route: 048
     Dates: start: 20221022, end: 202301
  2. ENDARI [Suspect]
     Active Substance: GLUTAMINE
     Dosage: 15 G
     Route: 048
     Dates: start: 20230616
  3. ENDARI [Suspect]
     Active Substance: GLUTAMINE
     Dosage: 15 G
     Route: 048
     Dates: start: 20230617
  4. ENDARI [Suspect]
     Active Substance: GLUTAMINE
     Dosage: 15 G
     Route: 048
     Dates: start: 20230623

REACTIONS (12)
  - Sickle cell anaemia with crisis [Unknown]
  - Hypersensitivity [Unknown]
  - Discomfort [Unknown]
  - Weight increased [Unknown]
  - Insomnia [Unknown]
  - Pruritus [Not Recovered/Not Resolved]
  - Hypertension [Unknown]
  - Headache [Recovered/Resolved]
  - Drug ineffective [Unknown]
  - Product dose omission issue [Unknown]
  - Treatment noncompliance [Unknown]
  - Off label use [Unknown]

NARRATIVE: CASE EVENT DATE: 20230101
